FAERS Safety Report 10907827 (Version 1)
Quarter: 2015Q1

REPORT INFORMATION
  Report Type: Spontaneous
  Country: US (occurrence: US)
  Receive Date: 20150312
  Receipt Date: 20150312
  Transmission Date: 20150721
  Serious: No
  Sender: FDA-Public Use
  Company Number: US-INCYTE CORPORATION-2014IN003795

PATIENT
  Sex: Female

DRUGS (22)
  1. VITAMIN D3 [Concomitant]
     Active Substance: CHOLECALCIFEROL
  2. ZANTAC [Concomitant]
     Active Substance: RANITIDINE HYDROCHLORIDE
  3. MAG OXIDE [Concomitant]
     Active Substance: MAGNESIUM OXIDE
  4. TYLENOL [Concomitant]
     Active Substance: ACETAMINOPHEN
  5. TOPROL XL [Concomitant]
     Active Substance: METOPROLOL SUCCINATE
  6. FISH OIL [Concomitant]
     Active Substance: FISH OIL
  7. GLUCOSAMINE [Concomitant]
     Active Substance: GLUCOSAMINE
  8. LIPOFLAVONOID                      /00457001/ [Concomitant]
  9. AMLODIPINE [Concomitant]
     Active Substance: AMLODIPINE BESYLATE
  10. XALATAN [Concomitant]
     Active Substance: LATANOPROST
  11. METAMUCIL                          /00091301/ [Concomitant]
  12. VITAMIN E                          /00110501/ [Concomitant]
  13. JAKAFI [Suspect]
     Active Substance: RUXOLITINIB
     Indication: MYELOFIBROSIS
     Dosage: 5 MG, BID
     Route: 048
     Dates: start: 20140814
  14. CYCLOBENZAPRINE [Concomitant]
     Active Substance: CYCLOBENZAPRINE
  15. PRAVASTATIN [Concomitant]
     Active Substance: PRAVASTATIN\PRAVASTATIN SODIUM
  16. MIRALAX [Concomitant]
     Active Substance: POLYETHYLENE GLYCOL 3350
  17. PREMARIN [Concomitant]
     Active Substance: ESTROGENS, CONJUGATED
  18. SPIRONOLACTONE. [Concomitant]
     Active Substance: SPIRONOLACTONE
  19. K-TAB [Concomitant]
     Active Substance: POTASSIUM CHLORIDE
  20. CLONIDINE. [Concomitant]
     Active Substance: CLONIDINE
  21. B12                                /00056201/ [Concomitant]
  22. GINKGO                             /01003101/ [Concomitant]

REACTIONS (3)
  - Oropharyngeal pain [Unknown]
  - Pyrexia [Unknown]
  - Mouth ulceration [Unknown]
